FAERS Safety Report 7964367 (Version 3)
Quarter: 2014Q1

REPORT INFORMATION
  Report Type: Spontaneous
  Country: CN (occurrence: CN)
  Receive Date: 20110527
  Receipt Date: 20140331
  Transmission Date: 20141002
  Serious: Yes (Life-Threatening, Hospitalization, Other)
  Sender: FDA-Public Use
  Company Number: CN-JNJFOC-20110509443

PATIENT
  Age: 40 Year
  Sex: Male
  Weight: 60 kg

DRUGS (6)
  1. ULTRACET [Suspect]
     Indication: PAIN
     Dosage: ONE TABLET 3 TIMES DAILY
     Route: 048
     Dates: start: 20110516, end: 20110518
  2. ULTRACET [Suspect]
     Indication: BACK PAIN
     Dosage: ONE TABLET 3 TIMES DAILY
     Route: 048
     Dates: start: 20110516, end: 20110518
  3. ULTRACET [Suspect]
     Indication: INTERVERTEBRAL DISC PROTRUSION
     Dosage: ONE TABLET 3 TIMES DAILY
     Route: 048
     Dates: start: 20110516, end: 20110518
  4. UNKNOWN MEDICATION [Concomitant]
     Indication: BACK PAIN
     Route: 048
  5. UNKNOWN MEDICATION [Concomitant]
     Indication: INTERVERTEBRAL DISC PROTRUSION
     Route: 048
  6. UNKNOWN MEDICATION [Concomitant]
     Indication: ANALGESIC THERAPY
     Route: 065

REACTIONS (8)
  - Cardiac arrest [Recovered/Resolved with Sequelae]
  - Chest discomfort [Recovered/Resolved]
  - Shock [Recovered/Resolved with Sequelae]
  - Muscle twitching [Not Recovered/Not Resolved]
  - Dysstasia [Not Recovered/Not Resolved]
  - Body temperature increased [Recovered/Resolved]
  - Pallor [Recovered/Resolved]
  - Hyperhidrosis [Recovered/Resolved]
